FAERS Safety Report 4634634-6 (Version None)
Quarter: 2005Q2

REPORT INFORMATION
  Report Type: 
  Country: None (occurrence: None)
  Receive Date: 20050411
  Receipt Date: 20050401
  Transmission Date: 20051028
  Serious: Yes (Hospitalization)
  Sender: FDA-Public Use
  Company Number: 2005-04-0012

PATIENT
  Age: 75 Year
  Sex: Male

DRUGS (11)
  1. CELESTENE (BETAMETHASONE SODIUM PHOSPHATE) INJECTABLE SOLUTION ^LIKE C [Suspect]
     Indication: BRONCHOPNEUMONIA
     Dosage: 4 MG DAILY
  2. PREDNISOLONE [Suspect]
     Indication: BRONCHOPNEUMONIA
     Dosage: 20 MG TID ORAL
     Route: 048
  3. GENTALLINE (GENTAMICIN SULFATE) INJECTABLE SOUTION [Concomitant]
  4. DOXAZSOIN MESYLATE [Concomitant]
  5. CORDARONE [Concomitant]
  6. COZAAR [Concomitant]
  7. VEINAMITOL [Concomitant]
  8. PANTOPRAZOL [Concomitant]
  9. ACETAMINOPHEN [Concomitant]
  10. LASILIX [Concomitant]
  11. AUMENTIN [Concomitant]

REACTIONS (1)
  - GASTROINTESTINAL HAEMORRHAGE [None]
